FAERS Safety Report 5298410-6 (Version None)
Quarter: 2007Q2

REPORT INFORMATION
  Report Type: 
  Country: None (occurrence: None)
  Receive Date: 20070409
  Receipt Date: 20070328
  Transmission Date: 20071010
  Serious: Yes (Hospitalization)
  Sender: FDA-Public Use
  Company Number: 6031564

PATIENT
  Age: 71 Year
  Sex: Female

DRUGS (7)
  1. DIANBEN (METFORMIN) [Suspect]
     Indication: DIABETES MELLITUS
     Dosage: ORAL
     Route: 048
     Dates: end: 20060129
  2. TRAZODONE HCL [Suspect]
     Indication: DRUG USE FOR UNKNOWN INDICATION
  3. NOVONORM (REPAGLINIDE) [Suspect]
     Indication: DIABETES MELLITUS
  4. ISCOVER (CLOPOIDROGEL SULFATE) [Suspect]
     Indication: DRUG USE FOR UNKNOWN INDICATION
     Dosage: 75 MG (75 MG, 1 D)
     Dates: end: 20060129
  5. DIGOXIN [Concomitant]
  6. ARICEPT [Concomitant]
  7. MANIDON (VERAPAMIL HYDROCHLORIDE) [Concomitant]

REACTIONS (4)
  - ASTHENIA [None]
  - BLOOD GLUCOSE INCREASED [None]
  - CYTOLYTIC HEPATITIS [None]
  - VOMITING [None]
